FAERS Safety Report 7773027-X (Version None)
Quarter: 2011Q3

REPORT INFORMATION
  Report Type: 
  Country: None (occurrence: None)
  Receive Date: 20110922
  Receipt Date: 20101220
  Transmission Date: 20111222
  Serious: Yes (Death)
  Sender: FDA-Public Use
  Company Number: US-ASTRAZENECA-2010SE60035

PATIENT
  Age: 16320 Day
  Sex: Female

DRUGS (3)
  1. SOMA [Concomitant]
  2. SEROQUEL [Suspect]
     Indication: ANXIETY
     Route: 048
  3. SEROQUEL [Suspect]
     Indication: DEPRESSION
     Route: 048

REACTIONS (7)
  - WEIGHT INCREASED [None]
  - OBESITY [None]
  - HYPERPHAGIA [None]
  - FATIGUE [None]
  - CONSTIPATION [None]
  - SOMNOLENCE [None]
  - ACCIDENTAL OVERDOSE [None]
